FAERS Safety Report 8778318 (Version 1)
Quarter: 2012Q4

REPORT INFORMATION
  Report Type: Report from Study
  Country: CA (occurrence: CA)
  Receive Date: 20120912
  Receipt Date: 20120912
  Transmission Date: 20130627
  Serious: Yes (Other)
  Sender: FDA-Public Use
  Company Number: CA-JNJFOC-20120901618

PATIENT
  Age: 20 None
  Sex: Female
  Weight: 54 kg

DRUGS (1)
  1. REMICADE [Suspect]
     Indication: COLITIS ULCERATIVE
     Route: 042
     Dates: start: 201009

REACTIONS (8)
  - Rash erythematous [Unknown]
  - Abdominal pain [Not Recovered/Not Resolved]
  - Induration [Unknown]
  - Arthralgia [Not Recovered/Not Resolved]
  - Eye pruritus [Recovered/Resolved]
  - Eye oedema [Recovered/Resolved]
  - Ocular hyperaemia [Recovered/Resolved]
  - Photosensitivity reaction [Recovered/Resolved]
